FAERS Safety Report 25491446 (Version 1)
Quarter: 2025Q2

REPORT INFORMATION
  Report Type: Spontaneous
  Country: US (occurrence: US)
  Receive Date: 20250629
  Receipt Date: 20250629
  Transmission Date: 20250717
  Serious: Yes (Other)
  Sender: JOHNSON AND JOHNSON
  Company Number: US-JNJFOC-20250625281

PATIENT
  Age: 55 Year
  Sex: Female

DRUGS (7)
  1. INVEGA SUSTENNA [Suspect]
     Active Substance: PALIPERIDONE PALMITATE
     Indication: Schizophrenia
     Route: 030
     Dates: start: 20221013, end: 20221013
  2. INVEGA SUSTENNA [Suspect]
     Active Substance: PALIPERIDONE PALMITATE
  3. INVEGA SUSTENNA [Suspect]
     Active Substance: PALIPERIDONE PALMITATE
  4. INVEGA [Suspect]
     Active Substance: PALIPERIDONE
     Indication: Schizophrenia
     Route: 048
     Dates: start: 20221012
  5. ATIVAN [Suspect]
     Active Substance: LORAZEPAM
     Indication: Catatonia
     Route: 065
  6. ATIVAN [Suspect]
     Active Substance: LORAZEPAM
     Route: 065
  7. ATIVAN [Suspect]
     Active Substance: LORAZEPAM
     Route: 065
     Dates: start: 20221017

REACTIONS (6)
  - Catatonia [Unknown]
  - Parkinsonism [Unknown]
  - Urinary tract infection [Unknown]
  - Hypertension [Unknown]
  - Tachycardia [Unknown]
  - Blood creatine phosphokinase increased [Unknown]

NARRATIVE: CASE EVENT DATE: 20221013
